FAERS Safety Report 13942374 (Version 1)
Quarter: 2017Q3

REPORT INFORMATION
  Report Type: Spontaneous
  Country: US (occurrence: US)
  Receive Date: 20170907
  Receipt Date: 20170907
  Transmission Date: 20171127
  Serious: Yes (Life-Threatening, Hospitalization)
  Sender: FDA-Public Use
  Company Number: None

PATIENT
  Sex: Female

DRUGS (13)
  1. LIVALO [Concomitant]
     Active Substance: PITAVASTATIN CALCIUM
  2. NEORAL [Suspect]
     Active Substance: CYCLOSPORINE
     Indication: RENAL TRANSPLANT
     Route: 048
     Dates: start: 20160803
  3. EXETIMIBE [Concomitant]
  4. AZATHIOPRINE. [Concomitant]
     Active Substance: AZATHIOPRINE
  5. PREDNISONE. [Concomitant]
     Active Substance: PREDNISONE
  6. FUROSEMIDE. [Concomitant]
     Active Substance: FUROSEMIDE
  7. XARELTO [Concomitant]
     Active Substance: RIVAROXABAN
  8. ULORIC [Concomitant]
     Active Substance: FEBUXOSTAT
  9. ONGLYZA [Concomitant]
     Active Substance: SAXAGLIPTIN HYDROCHLORIDE
  10. ATENOLOL. [Concomitant]
     Active Substance: ATENOLOL
  11. TRADJENTA [Concomitant]
     Active Substance: LINAGLIPTIN
  12. FLUCONAZOLE. [Concomitant]
     Active Substance: FLUCONAZOLE
  13. GLIMEPIRIDE. [Concomitant]
     Active Substance: GLIMEPIRIDE

REACTIONS (1)
  - Myocardial infarction [None]
